FAERS Safety Report 10170951 (Version 1)
Quarter: 2014Q2

REPORT INFORMATION
  Report Type: Spontaneous
  Country: US (occurrence: None)
  Receive Date: 20140512
  Receipt Date: 20140512
  Transmission Date: 20141212
  Serious: Yes (Life-Threatening, Hospitalization)
  Sender: FDA-Public Use
  Company Number: 17173747-2014-99965

PATIENT
  Age: 64 Year
  Sex: Female

DRUGS (3)
  1. DELFLEX [Suspect]
     Indication: RESPIRATORY DISTRESS
     Dosage: PERITONEAL DIALYSIS
  2. LIBERTY CYCLER SET [Concomitant]
  3. DEXTROSE SOLUTION [Concomitant]

REACTIONS (2)
  - Unresponsive to stimuli [None]
  - Respiratory arrest [None]
